FAERS Safety Report 4724400-5 (Version None)
Quarter: 2005Q3

REPORT INFORMATION
  Report Type: 
  Country: None (occurrence: None)
  Receive Date: 20050722
  Receipt Date: 20050708
  Transmission Date: 20060218
  Serious: Yes (Hospitalization)
  Sender: FDA-Public Use
  Company Number: 11791

PATIENT
  Age: 16 Year
  Sex: Female

DRUGS (4)
  1. METHOTREXATE [Suspect]
     Indication: BONE SARCOMA
     Dosage: 12 G/M2 PER_CYCLE IV
     Route: 042
     Dates: start: 20050328, end: 20050531
  2. METHOTREXATE [Suspect]
  3. METHOTREXATE [Suspect]
  4. HYDROMORPHONE HYDROCHLORIDE [Concomitant]

REACTIONS (6)
  - APHASIA [None]
  - ASTHENIA [None]
  - DYSARTHRIA [None]
  - DYSPHAGIA [None]
  - NEUROTOXICITY [None]
  - SOMNOLENCE [None]
